FAERS Safety Report 6027048-8 (Version None)
Quarter: 2009Q1

REPORT INFORMATION
  Report Type: 
  Country: None (occurrence: None)
  Receive Date: 20090105
  Receipt Date: 20081203
  Transmission Date: 20090719
  Serious: No
  Sender: FDA-Public Use
  Company Number: US-BAYER-200840050NA

PATIENT
  Age: 44 Year
  Sex: Female

DRUGS (1)
  1. MIRENA [Suspect]
     Indication: GENITAL HAEMORRHAGE
     Route: 015
     Dates: start: 20081125

REACTIONS (1)
  - POST PROCEDURAL HAEMORRHAGE [None]
